FAERS Safety Report 23649123 (Version 2)
Quarter: 2024Q1

REPORT INFORMATION
  Report Type: Spontaneous
  Country: ES (occurrence: ES)
  Receive Date: 20240319
  Receipt Date: 20240321
  Transmission Date: 20240410
  Serious: Yes (Other)
  Sender: FDA-Public Use
  Company Number: ES-SA-2024SA085156

PATIENT
  Sex: Male

DRUGS (2)
  1. ELOCTA [Suspect]
     Active Substance: EFMOROCTOCOG ALFA
     Dosage: UNK
     Route: 065
  2. ELOCTA [Suspect]
     Active Substance: EFMOROCTOCOG ALFA
     Dosage: UNK
     Route: 065

REACTIONS (1)
  - Haemarthrosis [Unknown]
